FAERS Safety Report 10007433 (Version 4)
Quarter: 2014Q2

REPORT INFORMATION
  Report Type: Spontaneous
  Country: US (occurrence: US)
  Receive Date: 20140313
  Receipt Date: 20140508
  Transmission Date: 20141212
  Serious: Yes (Hospitalization)
  Sender: FDA-Public Use
  Company Number: US-BAXTER-2014BAX011322

PATIENT
  Sex: Female

DRUGS (3)
  1. DIANEAL LOW CALCIUM (ULTRABAG) [Suspect]
     Indication: PERITONEAL DIALYSIS
     Route: 033
  2. DIANEAL LOW CALCIUM (ULTRABAG) [Suspect]
     Indication: PERITONEAL DIALYSIS
     Route: 033
  3. EXTRANEAL [Suspect]
     Indication: PERITONEAL DIALYSIS
     Route: 033

REACTIONS (8)
  - Urinary tract infection [Recovering/Resolving]
  - Pneumonia [Recovered/Resolved]
  - Sepsis [Unknown]
  - Infected skin ulcer [Recovering/Resolving]
  - Cellulitis [Recovering/Resolving]
  - Subcutaneous abscess [Recovering/Resolving]
  - Staphylococcal infection [Recovering/Resolving]
  - Hypotension [Unknown]
